FAERS Safety Report 20217371 (Version 1)
Quarter: 2021Q4

REPORT INFORMATION
  Report Type: Spontaneous
  Country: US (occurrence: US)
  Receive Date: 20211222
  Receipt Date: 20211222
  Transmission Date: 20220303
  Serious: Yes (Other)
  Sender: FDA-Public Use
  Company Number: US-PFIZER INC-202101772674

PATIENT
  Age: 90 Year
  Sex: Female

DRUGS (1)
  1. VYNDAMAX [Suspect]
     Active Substance: TAFAMIDIS
     Dosage: 61 MG

REACTIONS (28)
  - Angioedema [Unknown]
  - Carotid artery disease [Unknown]
  - Cardiomyopathy [Unknown]
  - Cardiac failure congestive [Unknown]
  - Deep vein thrombosis [Unknown]
  - Diverticulitis [Unknown]
  - Glaucoma [Unknown]
  - Hypothyroidism [Unknown]
  - Macular degeneration [Unknown]
  - Mast cell activation syndrome [Unknown]
  - Pulmonary hypertension [Unknown]
  - Rheumatoid arthritis [Unknown]
  - Transient ischaemic attack [Unknown]
  - Vertigo [Recovering/Resolving]
  - Chest pain [Recovered/Resolved]
  - Asthma [Unknown]
  - Varicose vein [Unknown]
  - Dyspnoea [Unknown]
  - Oedema [Unknown]
  - Essential hypertension [Unknown]
  - Gastric polyps [Unknown]
  - Hyponatraemia [Unknown]
  - Metabolic syndrome [Unknown]
  - Migraine [Unknown]
  - Osteopenia [Unknown]
  - Osteoporosis [Unknown]
  - Atrial septal defect [Unknown]
  - Sleep apnoea syndrome [Unknown]
